FAERS Safety Report 8330228-X (Version None)
Quarter: 2012Q2

REPORT INFORMATION
  Report Type: 
  Country: None (occurrence: None)
  Receive Date: 20120502
  Receipt Date: 20120424
  Transmission Date: 20120825
  Serious: No
  Sender: FDA-Public Use
  Company Number: US-B.I. PHARMACEUTICALS,INC./RIDGEFIELD-2012-BP-09338BP

PATIENT
  Sex: Female

DRUGS (16)
  1. TRAMADOL HCL [Concomitant]
     Indication: ARTHRALGIA
     Dosage: 200 MG
     Route: 048
  2. FOLIC ACID [Concomitant]
     Indication: SUPPLEMENTATION THERAPY
     Dosage: 400 MCG
     Route: 048
  3. PREDNISONE [Concomitant]
     Indication: RHEUMATOID ARTHRITIS
     Dosage: 15 MG
     Route: 048
  4. CITRACAL [Concomitant]
     Indication: SUPPLEMENTATION THERAPY
     Dosage: 800 MG
     Route: 048
  5. ASPIRIN [Concomitant]
     Indication: PROPHYLAXIS
     Dosage: 162 MG
     Route: 048
  6. ALBUTEROL [Concomitant]
     Indication: CHRONIC OBSTRUCTIVE PULMONARY DISEASE
     Route: 055
  7. CRESTOR [Concomitant]
     Indication: BLOOD CHOLESTEROL INCREASED
     Dosage: 10 MG
     Route: 048
  8. ADVAIR DISKUS 100/50 [Suspect]
     Indication: CHRONIC OBSTRUCTIVE PULMONARY DISEASE
     Dosage: 2 PUF
     Route: 055
     Dates: start: 20120401, end: 20120420
  9. PREMARIN [Concomitant]
     Indication: MENOPAUSE
     Dosage: 0.3 MG
     Route: 048
  10. THERAGRAN M [Concomitant]
     Indication: SUPPLEMENTATION THERAPY
     Route: 048
  11. MIRALAX [Concomitant]
     Indication: PROPHYLAXIS
     Dosage: 17 G
     Route: 048
  12. FISH OIL [Concomitant]
     Indication: SUPPLEMENTATION THERAPY
     Dosage: 2000 MG
     Route: 048
  13. VITAMIN D [Concomitant]
     Indication: VITAMIN SUPPLEMENTATION
     Dosage: 1000 U
     Route: 048
  14. SPIRIVA [Suspect]
     Indication: CHRONIC OBSTRUCTIVE PULMONARY DISEASE
     Dosage: 18 MCG
     Route: 055
     Dates: start: 20120401, end: 20120420
  15. CARVEDILOL [Concomitant]
     Indication: ATRIAL FIBRILLATION
     Dosage: 25 MG
     Route: 048
  16. LOSARTAN POTASSIUM [Concomitant]
     Indication: HYPERTENSION
     Dosage: 100 MG
     Route: 048

REACTIONS (2)
  - ORAL PAIN [None]
  - DYSPHAGIA [None]
